FAERS Safety Report 8482273-1 (Version None)
Quarter: 2012Q3

REPORT INFORMATION
  Report Type: 
  Country: None (occurrence: None)
  Receive Date: 20120702
  Receipt Date: 20120628
  Transmission Date: 20120928
  Serious: Yes (Death, Other)
  Sender: FDA-Public Use
  Company Number: PHHY2012JP056148

PATIENT
  Sex: Male

DRUGS (14)
  1. ALINAMIN F [Concomitant]
  2. PENFILL N [Concomitant]
  3. KALIMATE [Concomitant]
  4. TASIGNA [Suspect]
     Dosage: 200 MG, DAILY
     Route: 048
     Dates: start: 20090430, end: 20090430
  5. STARASID [Concomitant]
  6. TASIGNA [Suspect]
     Indication: CHRONIC MYELOID LEUKAEMIA
     Dosage: 400 MG, DAILY
     Route: 048
     Dates: start: 20090428, end: 20090429
  7. TORSEMIDE [Concomitant]
  8. LOSARTAN POTASSIUM [Concomitant]
  9. CANDESARTAN CILEXETIL [Concomitant]
  10. CONIEL [Concomitant]
  11. ENALAPRIL MALEATE [Concomitant]
  12. PENFILL R [Concomitant]
  13. LASIX [Concomitant]
  14. TASIGNA [Suspect]
     Dosage: 200 MG, DAILY
     Route: 048
     Dates: start: 20090503

REACTIONS (2)
  - RENAL FAILURE CHRONIC [None]
  - DEATH [None]
